FAERS Safety Report 10284050 (Version 1)
Quarter: 2014Q3

REPORT INFORMATION
  Report Type: Spontaneous
  Country: MX (occurrence: MX)
  Receive Date: 20140708
  Receipt Date: 20140708
  Transmission Date: 20150326
  Serious: Yes (Hospitalization)
  Sender: FDA-Public Use
  Company Number: MX-GALDERMA-MX14002465

PATIENT
  Age: 60 Year
  Sex: Female

DRUGS (5)
  1. TAFIL [Concomitant]
     Active Substance: ALPRAZOLAM
     Indication: SLEEP DISORDER
  2. HERBAL PRODUCTS [Concomitant]
     Indication: STRESS
  3. ELVALY [Suspect]
     Active Substance: BRIMONIDINE\BRIMONIDINE TARTRATE
     Indication: ERYTHEMA
     Dosage: 0.5%
     Route: 061
     Dates: start: 20140626, end: 20140626
  4. DESOWEN [Concomitant]
     Active Substance: DESONIDE
     Dosage: 0.05%
     Route: 061
     Dates: start: 20140626, end: 20140626
  5. LIDOCAINE/TETRACAINE [Concomitant]
     Indication: LOCAL ANAESTHESIA
     Dosage: 7%-7%
     Route: 061
     Dates: start: 20140626, end: 20140626

REACTIONS (6)
  - Off label use [Recovered/Resolved]
  - Confusional state [Recovered/Resolved]
  - Dizziness [Recovered/Resolved]
  - Toxicity to various agents [Recovered/Resolved]
  - Orthostatic hypotension [Recovered/Resolved]
  - Lethargy [Recovered/Resolved]

NARRATIVE: CASE EVENT DATE: 20140626
